FAERS Safety Report 20796319 (Version 2)
Quarter: 2022Q2

REPORT INFORMATION
  Report Type: Spontaneous
  Country: US (occurrence: US)
  Receive Date: 20220506
  Receipt Date: 20220510
  Transmission Date: 20220721
  Serious: Yes (Other)
  Sender: FDA-Public Use
  Company Number: US-PFIZER INC-202200661486

PATIENT

DRUGS (2)
  1. BRAFTOVI [Suspect]
     Active Substance: ENCORAFENIB
     Indication: Chemotherapy
     Dosage: UNK
  2. MEKTOVI [Suspect]
     Active Substance: BINIMETINIB
     Indication: Chemotherapy
     Dosage: UNK

REACTIONS (4)
  - Gastrointestinal disorder [Unknown]
  - Product dose omission issue [Unknown]
  - Dysphagia [Unknown]
  - Product use complaint [Unknown]
